FAERS Safety Report 9100664 (Version 1)
Quarter: 2013Q1

REPORT INFORMATION
  Report Type: Spontaneous
  Country: PH (occurrence: PH)
  Receive Date: 20130215
  Receipt Date: 20130215
  Transmission Date: 20140127
  Serious: Yes (Other)
  Sender: FDA-Public Use
  Company Number: PH-JNJFOC-20130200848

PATIENT
  Age: 52 Year
  Sex: Male

DRUGS (3)
  1. INVEGA SUSTENNA [Suspect]
     Indication: SCHIZOPHRENIA
     Route: 030
     Dates: start: 201212
  2. CHLORPROMAZINE [Concomitant]
     Route: 065
  3. CHLORPROMAZINE [Concomitant]
     Route: 065

REACTIONS (2)
  - Extrapyramidal disorder [Unknown]
  - Dyspnoea [Unknown]
